FAERS Safety Report 18485263 (Version 1)
Quarter: 2020Q4

REPORT INFORMATION
  Report Type: Spontaneous
  Country: US (occurrence: US)
  Receive Date: 20201109
  Receipt Date: 20201109
  Transmission Date: 20210114
  Serious: Yes (Hospitalization)
  Sender: FDA-Public Use
  Company Number: None

PATIENT
  Age: 90 Year
  Sex: Female

DRUGS (14)
  1. CAPECITABINE. [Suspect]
     Active Substance: CAPECITABINE
     Indication: BREAST CANCER
     Route: 048
     Dates: start: 20200525
  2. HYDROCO/APAP [Concomitant]
     Active Substance: ACETAMINOPHEN\HYDROCODONE
  3. FUROSEMIDE. [Concomitant]
     Active Substance: FUROSEMIDE
  4. PREVIDENT [Concomitant]
     Active Substance: SODIUM FLUORIDE
  5. DORZOL/TIMOL [Concomitant]
  6. GABAPENTIN. [Concomitant]
     Active Substance: GABAPENTIN
  7. POT CHLORIDE [Concomitant]
     Active Substance: POTASSIUM CHLORIDE
  8. SSD [Concomitant]
     Active Substance: SILVER SULFADIAZINE
  9. DULOXETINE. [Concomitant]
     Active Substance: DULOXETINE
  10. UREA. [Concomitant]
     Active Substance: UREA
  11. AMOXICILLIN. [Concomitant]
     Active Substance: AMOXICILLIN
  12. DOXYCYCL HYC [Concomitant]
  13. ONDANSETRON [Concomitant]
     Active Substance: ONDANSETRON
  14. CEPHALEXIN. [Concomitant]
     Active Substance: CEPHALEXIN

REACTIONS (6)
  - Fall [None]
  - Diarrhoea [None]
  - Dehydration [None]
  - Nausea [None]
  - Hypoaesthesia [None]
  - Fatigue [None]
